FAERS Safety Report 9824596 (Version 2)
Quarter: 2014Q1

REPORT INFORMATION
  Report Type: Spontaneous
  Country: US (occurrence: US)
  Receive Date: 20140117
  Receipt Date: 20140117
  Transmission Date: 20141002
  Serious: No
  Sender: FDA-Public Use
  Company Number: US-GILEAD-2011-0038855

PATIENT
  Sex: Male

DRUGS (3)
  1. LETAIRIS [Suspect]
     Indication: PULMONARY HYPERTENSION
     Route: 048
     Dates: start: 20100709
  2. LETAIRIS [Suspect]
     Indication: INTERSTITIAL LUNG DISEASE
  3. PREDNISONE [Concomitant]
     Indication: SARCOIDOSIS

REACTIONS (3)
  - Hypoxia [Recovered/Resolved]
  - Ventilation perfusion mismatch [Recovered/Resolved]
  - Drug ineffective [Recovered/Resolved]
